FAERS Safety Report 5450501-2 (Version None)
Quarter: 2007Q3

REPORT INFORMATION
  Report Type: 
  Country: None (occurrence: None)
  Receive Date: 20070912
  Receipt Date: 20070906
  Transmission Date: 20080115
  Serious: Yes (Hospitalization)
  Sender: FDA-Public Use
  Company Number: US-BOEHRINGER INGELHEIM PHARMACEUTICALS, INC.-2007-BP-17567BP

PATIENT
  Sex: Female

DRUGS (3)
  1. FLOMAX [Suspect]
     Route: 048
     Dates: start: 20070701, end: 20070701
  2. DETROL [Concomitant]
  3. DITROPAN [Concomitant]

REACTIONS (1)
  - HYPOTENSION [None]
